FAERS Safety Report 11172424 (Version 1)
Quarter: 2015Q2

REPORT INFORMATION
  Report Type: Spontaneous
  Country: US (occurrence: US)
  Receive Date: 20150608
  Receipt Date: 20150608
  Transmission Date: 20150821
  Serious: No
  Sender: FDA-Public Use
  Company Number: US-AMGEN-USASP2014045484

PATIENT

DRUGS (1)
  1. PROCRIT [Suspect]
     Active Substance: ERYTHROPOIETIN
     Indication: CHRONIC KIDNEY DISEASE
     Dosage: 20000 UNIT, EVERY 2 WEEKS FOR 8 WEEKS
     Route: 065

REACTIONS (2)
  - Drug ineffective [Unknown]
  - Haemoglobin decreased [Unknown]
